FAERS Safety Report 6128984-4 (Version None)
Quarter: 2009Q1

REPORT INFORMATION
  Report Type: 
  Country: None (occurrence: None)
  Receive Date: 20090324
  Receipt Date: 20090312
  Transmission Date: 20090719
  Serious: Yes (Other)
  Sender: FDA-Public Use
  Company Number: PHHY2009IT09969

PATIENT
  Age: 10 Year
  Sex: Male

DRUGS (12)
  1. CYCLOSPORINE [Suspect]
     Indication: NEPHROTIC SYNDROME
     Dosage: 5 MG/KG/DAY
  2. CYCLOSPORINE [Suspect]
     Dosage: 4 MG/KG/DAY
  3. CYCLOSPORINE [Suspect]
     Dosage: 3 MG/KG/DAY
  4. CYCLOSPORINE [Suspect]
     Dosage: 2 MG/KG/DAY
  5. CYCLOSPORINE [Suspect]
     Dosage: 2 MG/KG EVERY OTHER DAY
  6. PREDNISONE [Concomitant]
     Indication: NEPHROTIC SYNDROME
     Dosage: 60 MG/M^2
  7. PREDNISONE [Concomitant]
     Dosage: 20 MG/M^2 EVERY OTHER DAY
  8. PREDNISONE [Concomitant]
     Dosage: 40 MG/M^2 EVERY DAY
  9. PREDNISONE [Concomitant]
     Dosage: 25 MG/M^2 EVERY OTHER DAY
  10. PREDNISONE [Concomitant]
     Dosage: 40 MG/M^2 (0.2 MG/KG) EVERY OTHER DAY
  11. PREDNISONE [Concomitant]
     Dosage: 1 MG/KG
  12. PREDNISONE [Concomitant]
     Dosage: 0.2 MG/KG

REACTIONS (6)
  - LYMPHOMATOID PAPULOSIS [None]
  - PROTEINURIA [None]
  - PRURITUS [None]
  - RASH PAPULAR [None]
  - SKIN LESION [None]
  - SKIN ULCER [None]
